FAERS Safety Report 22304825 (Version 1)
Quarter: 2023Q2

REPORT INFORMATION
  Report Type: Spontaneous
  Country: US (occurrence: None)
  Receive Date: 20230509
  Receipt Date: 20230509
  Transmission Date: 20230722
  Serious: Yes (Hospitalization)
  Sender: FDA-Public Use
  Company Number: None

PATIENT
  Sex: Female

DRUGS (2)
  1. PREVYMIS [Suspect]
     Active Substance: LETERMOVIR
     Indication: Aplastic anaemia
     Dosage: FREQUENCY : DAILY;?
     Route: 048
     Dates: start: 20230501
  2. ZARXIO [Suspect]
     Active Substance: FILGRASTIM-SNDZ
     Indication: Aplastic anaemia
     Dosage: FREQUENCY : DAILY;?
     Route: 058
     Dates: start: 20230223

REACTIONS (1)
  - Bone marrow transplant [None]
